FAERS Safety Report 7426098-4 (Version None)
Quarter: 2011Q2

REPORT INFORMATION
  Report Type: 
  Country: None (occurrence: None)
  Receive Date: 20110420
  Receipt Date: 20110413
  Transmission Date: 20111010
  Serious: Yes (Other)
  Sender: FDA-Public Use
  Company Number: CN-ROCHE-771473

PATIENT
  Sex: Female
  Weight: 50 kg

DRUGS (3)
  1. MYCOPHENOLATE MOFETIL [Suspect]
     Indication: RENAL TRANSPLANT
     Route: 048
     Dates: start: 19950117
  2. SANDIMMUNE [Concomitant]
     Indication: RENAL TRANSPLANT
     Route: 048
     Dates: start: 19960901, end: 19971225
  3. CYCLOSPORINE [Concomitant]
     Indication: RENAL TRANSPLANT
     Dosage: TRADE NAME: XINSAISIPING
     Route: 048
     Dates: start: 19950117, end: 19960601

REACTIONS (2)
  - KIDNEY TRANSPLANT REJECTION [None]
  - RENAL FAILURE [None]
